FAERS Safety Report 6880670-9 (Version None)
Quarter: 2010Q3

REPORT INFORMATION
  Report Type: 
  Country: None (occurrence: None)
  Receive Date: 20100728
  Receipt Date: 20100719
  Transmission Date: 20110219
  Serious: Yes (Other)
  Sender: FDA-Public Use
  Company Number: US-BIOGENIDEC-2009BI033663

PATIENT
  Age: 31 Year
  Sex: Female

DRUGS (4)
  1. TYSABRI [Suspect]
     Indication: MULTIPLE SCLEROSIS
     Route: 042
     Dates: start: 20090807, end: 20091002
  2. TYSABRI [Suspect]
     Route: 042
     Dates: start: 20100715
  3. EFFEXOR [Concomitant]
     Dates: end: 20091001
  4. NATAL CARE PLUS [Concomitant]
     Dates: start: 20091013

REACTIONS (2)
  - BREECH PRESENTATION [None]
  - PREGNANCY [None]
